FAERS Safety Report 5097409-2 (Version None)
Quarter: 2006Q3

REPORT INFORMATION
  Report Type: 
  Country: None (occurrence: None)
  Receive Date: 20060906
  Receipt Date: 20060828
  Transmission Date: 20061208
  Serious: Yes (Hospitalization)
  Sender: FDA-Public Use
  Company Number: CN-AVENTIS-200618916GDDC

PATIENT
  Age: 71 Year
  Sex: Male

DRUGS (1)
  1. AMARYL [Suspect]
     Indication: DIABETES MELLITUS
     Route: 048
     Dates: start: 20041005, end: 20051201

REACTIONS (17)
  - ABDOMINAL DISTENSION [None]
  - ANAEMIA MEGALOBLASTIC [None]
  - BLOOD GLUCOSE INCREASED [None]
  - CHROMATURIA [None]
  - CONSTIPATION [None]
  - DECREASED APPETITE [None]
  - DIARRHOEA [None]
  - DYSGEUSIA [None]
  - HEPATITIS [None]
  - HEPATITIS ACUTE [None]
  - LETHARGY [None]
  - NEUTROPHIL COUNT DECREASED [None]
  - PLATELET COUNT DECREASED [None]
  - PROTEIN TOTAL DECREASED [None]
  - TREATMENT NONCOMPLIANCE [None]
  - ULTRASOUND SCAN ABNORMAL [None]
  - WHITE BLOOD CELL COUNT DECREASED [None]
